FAERS Safety Report 4393624-1 (Version None)
Quarter: 2004Q3

REPORT INFORMATION
  Report Type: 
  Country: None (occurrence: None)
  Receive Date: 20040709
  Receipt Date: 20040629
  Transmission Date: 20050211
  Serious: Yes (Hospitalization)
  Sender: FDA-Public Use
  Company Number: 200412231JP

PATIENT
  Age: 72 Year
  Sex: Female

DRUGS (1)
  1. LASIX [Suspect]
     Route: 048

REACTIONS (2)
  - ANAPHYLACTIC SHOCK [None]
  - RASH GENERALISED [None]
